FAERS Safety Report 16106803 (Version 1)
Quarter: 2019Q1

REPORT INFORMATION
  Report Type: Spontaneous
  Country: ES (occurrence: ES)
  Receive Date: 20190322
  Receipt Date: 20190322
  Transmission Date: 20190418
  Serious: Yes (Hospitalization)
  Sender: FDA-Public Use
  Company Number: ES-MYLANLABS-2019M1026320

PATIENT
  Age: 81 Year
  Sex: Female

DRUGS (8)
  1. ADIRO [Concomitant]
     Active Substance: ASPIRIN
     Dosage: 0-1-0
     Route: 048
     Dates: start: 20161030
  2. QUETIAPINA                         /01270901/ [Concomitant]
     Active Substance: QUETIAPINE
     Dosage: 25 MG DIA
     Route: 048
     Dates: start: 20161030
  3. ATORVASTATINA                      /01326101/ [Concomitant]
     Active Substance: ATORVASTATIN
     Dosage: 40 MG DIA
     Route: 048
     Dates: start: 20161030
  4. LEVOTIROXINA                       /00068001/ [Concomitant]
     Dosage: 75 MG DIA
     Route: 048
     Dates: start: 20161030
  5. MEMANTINA                          /00646901/ [Concomitant]
     Active Substance: MEMANTINE
     Dosage: 10 MG DIA
     Route: 048
     Dates: start: 20161030
  6. METFORMIN [Interacting]
     Active Substance: METFORMIN HYDROCHLORIDE
     Indication: TYPE 2 DIABETES MELLITUS
     Dosage: 1-0-1
     Route: 048
     Dates: start: 20161030, end: 20171029
  7. REPAGLINIDE. [Suspect]
     Active Substance: REPAGLINIDE
     Indication: TYPE 2 DIABETES MELLITUS
     Dosage: 0-1-0
     Route: 048
     Dates: start: 20161030, end: 20171029
  8. ENALAPRIL [Concomitant]
     Active Substance: ENALAPRIL
     Dosage: 1-0-0
     Route: 048
     Dates: start: 20161030

REACTIONS (3)
  - Hypoglycaemia [Recovered/Resolved]
  - Metabolic acidosis [Recovered/Resolved]
  - Drug interaction [Unknown]

NARRATIVE: CASE EVENT DATE: 20171028
